FAERS Safety Report 10466253 (Version 3)
Quarter: 2021Q3

REPORT INFORMATION
  Report Type: Spontaneous
  Country: DE (occurrence: DE)
  Receive Date: 20140922
  Receipt Date: 20210816
  Transmission Date: 20211014
  Serious: Yes (Other)
  Sender: FDA-Public Use
  Company Number: DE-AUROBINDO-AUR-APL-2014-06220

PATIENT
  Age: 34 Year
  Sex: Female

DRUGS (17)
  1. FLUOXETINE [Suspect]
     Active Substance: FLUOXETINE HYDROCHLORIDE
     Indication: PRODUCT USED FOR UNKNOWN INDICATION
     Dosage: 20 MILLIGRAM, DAILY
     Route: 048
     Dates: end: 20140209
  2. PROTAPHANE [Concomitant]
     Active Substance: INSULIN HUMAN
     Indication: PRODUCT USED FOR UNKNOWN INDICATION
     Dosage: 9 INTERNATIONAL UNIT, DAILY
     Route: 058
  3. SIMVASTATIN 20MG [Suspect]
     Active Substance: SIMVASTATIN
     Indication: PRODUCT USED FOR UNKNOWN INDICATION
     Dosage: 20 MILLIGRAM, DAILY
     Route: 048
     Dates: end: 20140210
  4. KEPPRA [Suspect]
     Active Substance: LEVETIRACETAM
     Indication: PRODUCT USED FOR UNKNOWN INDICATION
     Dosage: 1500 MILLIGRAM, DAILY
     Route: 048
  5. OXYGESIC [Concomitant]
     Active Substance: OXYCODONE
     Dosage: 10 MILLIGRAM, DAILY
     Route: 048
     Dates: start: 20140204, end: 20140206
  6. PANTOZOL [Suspect]
     Active Substance: PANTOPRAZOLE SODIUM
     Indication: PRODUCT USED FOR UNKNOWN INDICATION
     Dosage: 20 MILLIGRAM, DAILY
     Route: 048
  7. OXYGESIC [Concomitant]
     Active Substance: OXYCODONE
     Dosage: 5 MILLIGRAM, DAILY
     Route: 048
     Dates: start: 20140207, end: 20140210
  8. IBUPROFEN. [Suspect]
     Active Substance: IBUPROFEN
     Indication: PRODUCT USED FOR UNKNOWN INDICATION
     Dosage: 1800 MILLIGRAM, DAILY
     Route: 048
     Dates: start: 20140124, end: 20140205
  9. IBUPROFEN. [Suspect]
     Active Substance: IBUPROFEN
     Dosage: 1200 MILLIGRAM, DAILY
     Route: 065
     Dates: start: 20140206, end: 20140209
  10. OXYGESIC [Concomitant]
     Active Substance: OXYCODONE
     Dosage: UNK
     Route: 065
     Dates: start: 20010204, end: 20140210
  11. MELPERONE [Suspect]
     Active Substance: MELPERONE
     Indication: PRODUCT USED FOR UNKNOWN INDICATION
     Dosage: 25 MILLIGRAM, DAILY
     Route: 048
     Dates: start: 20140131, end: 20140208
  12. ACTRAPID [Concomitant]
     Active Substance: INSULIN HUMAN
     Indication: PRODUCT USED FOR UNKNOWN INDICATION
     Dosage: 7 MILLILITER, DAILY
     Route: 058
  13. OXYGESIC [Concomitant]
     Active Substance: OXYCODONE
     Indication: PRODUCT USED FOR UNKNOWN INDICATION
     Dosage: 20 MILLIGRAM, DAILY
     Route: 048
     Dates: start: 20140124, end: 20140203
  14. NOVAMINSULFON [Concomitant]
     Active Substance: METAMIZOLE
     Indication: PRODUCT USED FOR UNKNOWN INDICATION
     Dosage: 2000 MILLIGRAM, DAILY
     Route: 048
     Dates: start: 20140124, end: 20140208
  15. NOVAMINSULFON [Concomitant]
     Active Substance: METAMIZOLE
     Dosage: 1000 MILLIGRAM, DAILY
     Route: 048
     Dates: end: 20140209
  16. CLEXANE [Suspect]
     Active Substance: ENOXAPARIN SODIUM
     Indication: PRODUCT USED FOR UNKNOWN INDICATION
     Dosage: 0.2 MILLILITER, DAILY
     Route: 058
     Dates: start: 20140124, end: 20140202
  17. MACROGOL [Concomitant]
     Active Substance: POLYETHYLENE GLYCOLS
     Indication: PRODUCT USED FOR UNKNOWN INDICATION
     Dosage: 1 DOSAGE FORM, DAILY
     Route: 048
     Dates: start: 20140128, end: 20140304

REACTIONS (1)
  - Hepatic enzyme increased [Recovering/Resolving]

NARRATIVE: CASE EVENT DATE: 20140207
